FAERS Safety Report 9224757 (Version 1)
Quarter: 2013Q2

REPORT INFORMATION
  Report Type: Spontaneous
  Country: PK (occurrence: PK)
  Receive Date: 20130411
  Receipt Date: 20130411
  Transmission Date: 20140414
  Serious: Yes (Death)
  Sender: FDA-Public Use
  Company Number: PK-SANOFI-AVENTIS-2013SA036548

PATIENT
  Age: 52 Year
  Sex: Female
  Weight: 60 kg

DRUGS (5)
  1. LANTUS SOLOSTAR [Suspect]
     Indication: TYPE 2 DIABETES MELLITUS
     Route: 058
     Dates: end: 20130327
  2. SOLOSTAR [Suspect]
     Indication: DEVICE THERAPY
     Dates: end: 20130327
  3. ACE INHIBITOR NOS [Concomitant]
     Indication: HYPERTENSION
     Route: 048
     Dates: end: 20130327
  4. CHOLESTEROL- AND TRIGLYCERIDE REDUCERS [Concomitant]
     Indication: HYPERCHOLESTEROLAEMIA
     Route: 048
     Dates: end: 20130327
  5. HUMULIN R [Concomitant]
     Indication: TYPE 2 DIABETES MELLITUS
     Route: 058
     Dates: end: 20130327

REACTIONS (2)
  - Hyperglycaemia [Fatal]
  - Pyrexia [Unknown]
